FAERS Safety Report 15096969 (Version 1)
Quarter: 2018Q3

REPORT INFORMATION
  Report Type: Spontaneous
  Country: US (occurrence: US)
  Receive Date: 20180702
  Receipt Date: 20180702
  Transmission Date: 20181010
  Serious: Yes (Other)
  Sender: FDA-Public Use
  Company Number: US-ROCHE-2146710

PATIENT
  Sex: Male

DRUGS (2)
  1. MEGACE [Concomitant]
     Active Substance: MEGESTROL ACETATE
     Dosage: YES
     Route: 065
  2. ESBRIET [Suspect]
     Active Substance: PIRFENIDONE
     Indication: IDIOPATHIC PULMONARY FIBROSIS
     Dosage: 3 TABLETS TID (TOTAL 9 TABLETS/DAY)
     Route: 048
     Dates: start: 201803

REACTIONS (2)
  - Depression [Unknown]
  - Weight decreased [Unknown]
